FAERS Safety Report 22234265 (Version 1)
Quarter: 2023Q2

REPORT INFORMATION
  Report Type: Spontaneous
  Country: US (occurrence: None)
  Receive Date: 20230420
  Receipt Date: 20230420
  Transmission Date: 20230721
  Serious: No
  Sender: FDA-Public Use
  Company Number: US-ROCHE-3150376

PATIENT
  Sex: Female
  Weight: 50.8 kg

DRUGS (2)
  1. ESBRIET [Suspect]
     Active Substance: PIRFENIDONE
     Indication: Product used for unknown indication
     Route: 048
  2. TYVASO [Suspect]
     Active Substance: TREPROSTINIL
     Indication: Pulmonary arterial hypertension
     Dosage: CONCENTRATION OF 0.6 MG/ML  3 BREATHS, FOUR TIMES A DAY QID VIA INHALATION
     Route: 055
     Dates: start: 20220705

REACTIONS (2)
  - Vomiting [Unknown]
  - Product after taste [Unknown]
